FAERS Safety Report 5219686-7 (Version None)
Quarter: 2007Q1

REPORT INFORMATION
  Report Type: 
  Country: None (occurrence: None)
  Receive Date: 20070125
  Receipt Date: 20070116
  Transmission Date: 20070707
  Serious: Yes (Other)
  Sender: FDA-Public Use
  Company Number: FR-PFIZER INC-2006123389

PATIENT
  Sex: Female
  Weight: 84 kg

DRUGS (6)
  1. AROMASIN [Suspect]
     Indication: BREAST CANCER
     Route: 048
     Dates: start: 20060404, end: 20060830
  2. COAPROVEL [Concomitant]
     Route: 048
     Dates: start: 20010101
  3. VASTEN [Concomitant]
     Route: 048
     Dates: start: 19990101
  4. ASPIRIN [Concomitant]
     Route: 048
  5. PIASCLEDINE [Concomitant]
     Route: 048
     Dates: start: 19990101
  6. ESBERIVEN [Concomitant]
     Route: 048
     Dates: start: 20060101

REACTIONS (1)
  - RETINAL ISCHAEMIA [None]
